FAERS Safety Report 8029916-4 (Version None)
Quarter: 2012Q1

REPORT INFORMATION
  Report Type: 
  Country: None (occurrence: None)
  Receive Date: 20120109
  Receipt Date: 20111122
  Transmission Date: 20120608
  Serious: Yes (Death, Hospitalization, Other)
  Sender: FDA-Public Use
  Company Number: GB-RANBAXY-2011R1-48662

PATIENT
  Sex: Female

DRUGS (7)
  1. ACETAMINOPHEN [Interacting]
     Indication: PROCEDURAL PAIN
  2. ACETAMINOPHEN [Interacting]
     Indication: WOUND COMPLICATION
  3. ACETAMINOPHEN [Suspect]
     Indication: ARTHRALGIA
     Dosage: UNK
     Route: 065
  4. FLUCLOXACILLIN [Interacting]
     Indication: STAPHYLOCOCCAL INFECTION
     Dosage: 2 G, QID
     Route: 042
  5. FLUCLOXACILLIN [Interacting]
     Indication: SEPSIS
  6. FLUCLOXACILLIN [Interacting]
  7. CEFUROXIME [Concomitant]
     Indication: PRODUCT USED FOR UNKNOWN INDICATION
     Dosage: UNK
     Route: 042

REACTIONS (8)
  - METABOLIC ACIDOSIS [None]
  - HYPOKALAEMIA [None]
  - PYROGLUTAMATE INCREASED [None]
  - ENTEROCOCCAL INFECTION [None]
  - RENAL IMPAIRMENT [None]
  - DRUG INTERACTION [None]
  - STAPHYLOCOCCAL SEPSIS [None]
  - ARTHRITIS INFECTIVE [None]
